FAERS Safety Report 6310271-2 (Version None)
Quarter: 2009Q3

REPORT INFORMATION
  Report Type: 
  Country: None (occurrence: None)
  Receive Date: 20090814
  Receipt Date: 20090804
  Transmission Date: 20100115
  Serious: Yes (Other)
  Sender: FDA-Public Use
  Company Number: PHHY2009CA32611

PATIENT
  Sex: Male

DRUGS (2)
  1. EXELON [Suspect]
     Dosage: EXELON PATCH 5
     Route: 062
  2. EXELON [Suspect]
     Dosage: EXELON PATCH 10
     Route: 062

REACTIONS (4)
  - AGGRESSION [None]
  - ANGER [None]
  - DRUG INEFFECTIVE [None]
  - INCORRECT DOSE ADMINISTERED [None]
